FAERS Safety Report 11850621 (Version 1)
Quarter: 2015Q4

REPORT INFORMATION
  Report Type: Spontaneous
  Country: US (occurrence: US)
  Receive Date: 20151218
  Receipt Date: 20151218
  Transmission Date: 20160305
  Serious: No
  Sender: FDA-Public Use
  Company Number: US-JNJFOC-20151119650

PATIENT
  Age: 67 Year
  Sex: Male
  Weight: 71.22 kg

DRUGS (3)
  1. ALL OTHER THERAPEUTIC PRODUCTS [Concomitant]
     Active Substance: UNSPECIFIED INGREDIENT
     Indication: HYPERTENSION
     Route: 065
  2. CHILDRENS ZYRTEC [Suspect]
     Active Substance: CETIRIZINE HYDROCHLORIDE
     Route: 048
  3. CHILDRENS ZYRTEC [Suspect]
     Active Substance: CETIRIZINE HYDROCHLORIDE
     Indication: MULTIPLE ALLERGIES
     Dosage: 5MG NIGHTLY
     Route: 048
     Dates: start: 2015

REACTIONS (2)
  - Drug administered to patient of inappropriate age [Not Recovered/Not Resolved]
  - Somnolence [Not Recovered/Not Resolved]
